FAERS Safety Report 6733511-4 (Version None)
Quarter: 2010Q2

REPORT INFORMATION
  Report Type: 
  Country: None (occurrence: None)
  Receive Date: 20100518
  Receipt Date: 20100504
  Transmission Date: 20101027
  Serious: Yes (Hospitalization)
  Sender: FDA-Public Use
  Company Number: DSU-2010-01931

PATIENT
  Sex: Female
  Weight: 56.6996 kg

DRUGS (2)
  1. BENICAR HCT [Suspect]
     Indication: HYPERTENSION
     Dosage: 20/12.5MG (QD), PER ORAL
     Route: 048
     Dates: start: 20050101
  2. MYLANTA (MAGNESIUM HYDROXIDE, ALUMINIUIM HYDROXIDE GEL, DRIED, SIMETIC [Concomitant]

REACTIONS (4)
  - ANAEMIA [None]
  - BLOOD PRESSURE FLUCTUATION [None]
  - RENAL ATROPHY [None]
  - RENAL IMPAIRMENT [None]
